FAERS Safety Report 7273909-1 (Version None)
Quarter: 2011Q1

REPORT INFORMATION
  Report Type: 
  Country: None (occurrence: None)
  Receive Date: 20110203
  Receipt Date: 20110127
  Transmission Date: 20110831
  Serious: Yes (Other)
  Sender: FDA-Public Use
  Company Number: US-AMGEN-USASP2011005187

PATIENT
  Sex: Male

DRUGS (2)
  1. NPLATE [Suspect]
     Indication: IDIOPATHIC THROMBOCYTOPENIC PURPURA
     Dosage: UNK UNK, QWK
     Dates: start: 20100601
  2. NPLATE [Suspect]
     Dates: start: 20100601, end: 20110117

REACTIONS (6)
  - HERPES ZOSTER [None]
  - LYMPHOCYTE COUNT ABNORMAL [None]
  - VARICELLA [None]
  - PLATELET COUNT DECREASED [None]
  - WHITE BLOOD CELL COUNT ABNORMAL [None]
  - BLEPHARITIS [None]
